FAERS Safety Report 16541957 (Version 1)
Quarter: 2019Q3

REPORT INFORMATION
  Report Type: Spontaneous
  Country: ES (occurrence: ES)
  Receive Date: 20190708
  Receipt Date: 20190708
  Transmission Date: 20191004
  Serious: Yes (Hospitalization, Other)
  Sender: FDA-Public Use
  Company Number: ES-MYLANLABS-M-EU-2009110076

PATIENT
  Age: 33 Year
  Sex: Female

DRUGS (6)
  1. DIAZEPAM. [Suspect]
     Active Substance: DIAZEPAM
     Indication: DEPRESSION
     Dosage: 10 MILLIGRAM, Q3D
  2. DIAZEPAM. [Suspect]
     Active Substance: DIAZEPAM
     Indication: FIBROMYALGIA
  3. CITALOPRAM [Suspect]
     Active Substance: CITALOPRAM HYDROBROMIDE
     Indication: FIBROMYALGIA
  4. LORMETAZEPAM [Suspect]
     Active Substance: LORMETAZEPAM
     Indication: FIBROMYALGIA
  5. CITALOPRAM [Suspect]
     Active Substance: CITALOPRAM HYDROBROMIDE
     Indication: DEPRESSION
     Dosage: UNK
  6. LORMETAZEPAM [Suspect]
     Active Substance: LORMETAZEPAM
     Indication: DEPRESSION
     Dosage: 2 MILLIGRAM, QD
     Route: 065

REACTIONS (3)
  - Depression [Unknown]
  - Drug dependence [Unknown]
  - Drug withdrawal syndrome [Unknown]
